FAERS Safety Report 25943535 (Version 1)
Quarter: 2025Q4

REPORT INFORMATION
  Report Type: Spontaneous
  Country: US (occurrence: None)
  Receive Date: 20251020
  Receipt Date: 20251020
  Transmission Date: 20260117
  Serious: No
  Sender: FDA-CTU
  Company Number: None

PATIENT

DRUGS (3)
  1. SODIUM CHLORIDE INHALATION SOLUTION [Suspect]
     Active Substance: SODIUM CHLORIDE
  2. ALBUTEROL [Suspect]
     Active Substance: ALBUTEROL
  3. SODIUM CHLORIDE [Concomitant]
     Active Substance: SODIUM CHLORIDE

REACTIONS (3)
  - Product packaging confusion [None]
  - Product label issue [None]
  - Circumstance or information capable of leading to medication error [None]

NARRATIVE: CASE EVENT DATE: 20250930
